FAERS Safety Report 4757652-6 (Version None)
Quarter: 2005Q3

REPORT INFORMATION
  Report Type: 
  Country: None (occurrence: None)
  Receive Date: 20050831
  Receipt Date: 20050816
  Transmission Date: 20060218
  Serious: Yes (Other)
  Sender: FDA-Public Use
  Company Number: US-GLAXOSMITHKLINE-A0570443A

PATIENT
  Age: 16 Year
  Sex: Female
  Weight: 50.9 kg

DRUGS (2)
  1. ADVAIR DISKUS 100/50 [Suspect]
     Indication: ASTHMA
     Route: 055
     Dates: start: 20010831
  2. ALBUTEROL [Concomitant]
     Dates: start: 19971101

REACTIONS (1)
  - DENTAL CARIES [None]
